FAERS Safety Report 7709325-5 (Version None)
Quarter: 2011Q3

REPORT INFORMATION
  Report Type: 
  Country: None (occurrence: None)
  Receive Date: 20110825
  Receipt Date: 20110818
  Transmission Date: 20111222
  Serious: Yes (Death, Other)
  Sender: FDA-Public Use
  Company Number: US-BAXTER-2011BH025317

PATIENT
  Age: 51 Year
  Sex: Male

DRUGS (1)
  1. RECOMBINATE [Suspect]
     Indication: PRODUCT USED FOR UNKNOWN INDICATION
     Route: 065

REACTIONS (2)
  - PROSTATE CANCER [None]
  - PANCREATIC CARCINOMA [None]
